FAERS Safety Report 12108588 (Version 1)
Quarter: 2016Q1

REPORT INFORMATION
  Report Type: Spontaneous
  Country: US (occurrence: None)
  Receive Date: 20160222
  Receipt Date: 20160222
  Transmission Date: 20160526
  Serious: Yes (Disabling)
  Sender: FDA-Public Use
  Company Number: None

PATIENT
  Age: 67 Year
  Sex: Female
  Weight: 81.65 kg

DRUGS (6)
  1. EFFEXOR [Concomitant]
     Active Substance: VENLAFAXINE HYDROCHLORIDE
  2. OMEPRAZOL [Concomitant]
     Active Substance: OMEPRAZOLE
  3. MELOXICAM. [Concomitant]
     Active Substance: MELOXICAM
  4. CENTRUM SILVER [Concomitant]
     Active Substance: MINERALS\VITAMINS
  5. HAIR SKIN NAILS (VIT B^S) [Concomitant]
  6. LEVOFLOXACIN. [Suspect]
     Active Substance: LEVOFLOXACIN
     Indication: PNEUMONIA
     Route: 048
     Dates: start: 20150730, end: 20150811

REACTIONS (10)
  - Neuropathy peripheral [None]
  - Hypoaesthesia [None]
  - Gait disturbance [None]
  - Paraesthesia [None]
  - Pain in extremity [None]
  - Inflammation [None]
  - Arthralgia [None]
  - Myalgia [None]
  - Insomnia [None]
  - Activities of daily living impaired [None]

NARRATIVE: CASE EVENT DATE: 20150809
